FAERS Safety Report 17488970 (Version 1)
Quarter: 2020Q1

REPORT INFORMATION
  Report Type: Spontaneous
  Country: US (occurrence: US)
  Receive Date: 20200220
  Receipt Date: 20200220
  Transmission Date: 20200409
  Serious: Yes (Life-Threatening, Hospitalization)
  Sender: FDA-Public Use
  Company Number: None

PATIENT
  Age: 70 Year
  Sex: Male
  Weight: 108 kg

DRUGS (2)
  1. CORDARONE [Suspect]
     Active Substance: AMIODARONE HYDROCHLORIDE
     Route: 048
     Dates: start: 20200207, end: 20200212
  2. AMIODARONE (AMIODARONE HCL 1.8MG/ML/DEXTROSE 5% INJ, BAG , 200ML)) [Suspect]
     Active Substance: AMIODARONE
     Indication: ATRIAL FIBRILLATION
     Dosage: ?          OTHER FREQUENCY:PER HOUR;?
     Route: 042
     Dates: start: 20200206, end: 20200208

REACTIONS (1)
  - Acute lung injury [None]

NARRATIVE: CASE EVENT DATE: 20200212
